FAERS Safety Report 19392362 (Version 1)
Quarter: 2021Q2

REPORT INFORMATION
  Report Type: Spontaneous
  Country: DE (occurrence: DE)
  Receive Date: 20210608
  Receipt Date: 20210608
  Transmission Date: 20210717
  Serious: Yes (Hospitalization)
  Sender: FDA-Public Use
  Company Number: DE-AMGEN-DEUSP2021085311

PATIENT
  Age: 52 Year
  Sex: Male
  Weight: 84 kg

DRUGS (5)
  1. FOLINIC ACID [Suspect]
     Active Substance: LEUCOVORIN
     Indication: PRODUCT USED FOR UNKNOWN INDICATION
     Dosage: UNK (AS PER SCHEME, SOLUTION FOR INJECTION/INFUSION)
     Route: 065
  2. BEVACIZUMAB. [Suspect]
     Active Substance: BEVACIZUMAB
     Indication: PRODUCT USED FOR UNKNOWN INDICATION
     Dosage: UNK (AS PER SCHEME, SOLUTION FOR INJECTION/INFUSION)
     Route: 065
  3. OXALIPLATIN. [Suspect]
     Active Substance: OXALIPLATIN
     Indication: PRODUCT USED FOR UNKNOWN INDICATION
     Dosage: UNK (AS PER SCHEME, SOLUTION FOR INJECTION/INFUSION)
     Route: 065
  4. FLUOROURACIL. [Suspect]
     Active Substance: FLUOROURACIL
     Indication: PRODUCT USED FOR UNKNOWN INDICATION
     Dosage: UNK (AS PER SCHEME, SOLUTION FOR INJECTION/INFUSION)
     Route: 065
  5. ATENOLOL. [Concomitant]
     Active Substance: ATENOLOL
     Dosage: UNK (50 MG, 3?0?0?0, TABLET)

REACTIONS (4)
  - Cough [Not Recovered/Not Resolved]
  - Haemoptysis [Not Recovered/Not Resolved]
  - Haematemesis [Not Recovered/Not Resolved]
  - Vomiting [Not Recovered/Not Resolved]
